FAERS Safety Report 14665523 (Version 1)
Quarter: 2018Q1

REPORT INFORMATION
  Report Type: Report from Study
  Country: IT (occurrence: IT)
  Receive Date: 20180321
  Receipt Date: 20180321
  Transmission Date: 20180509
  Serious: Yes (Hospitalization, Other)
  Sender: FDA-Public Use
  Company Number: IT-ASTELLAS-2018US013740

PATIENT
  Age: 72 Year
  Sex: Male

DRUGS (3)
  1. ENANTONE LP [Concomitant]
     Active Substance: LEUPROLIDE ACETATE
     Indication: PRODUCT USED FOR UNKNOWN INDICATION
     Dosage: 11.25 MG, EVERY 3 MONTHS
     Route: 065
  2. ENZALUTAMIDE [Suspect]
     Active Substance: ENZALUTAMIDE
     Indication: PROSTATE CANCER
     Route: 048
     Dates: start: 20170929, end: 20180311
  3. PERINDOPRIL [Concomitant]
     Active Substance: PERINDOPRIL
     Indication: PRODUCT USED FOR UNKNOWN INDICATION
     Route: 065

REACTIONS (4)
  - Haematuria [Unknown]
  - Acute kidney injury [Unknown]
  - Blood creatinine increased [Unknown]
  - Dysarthria [Unknown]

NARRATIVE: CASE EVENT DATE: 20180312
